FAERS Safety Report 23921880 (Version 2)
Quarter: 2024Q3

REPORT INFORMATION
  Report Type: Spontaneous
  Country: IT (occurrence: IT)
  Receive Date: 20240530
  Receipt Date: 20240706
  Transmission Date: 20241017
  Serious: Yes (Hospitalization, Other)
  Sender: AUROBINDO
  Company Number: IT-MINISAL02-985321

PATIENT
  Age: 59 Year
  Sex: Male

DRUGS (3)
  1. AMOXICILLIN\CLAVULANIC ACID [Suspect]
     Active Substance: AMOXICILLIN\CLAVULANIC ACID
     Indication: Bacterial infection
     Dosage: UNK
     Route: 048
     Dates: start: 20240507, end: 20240507
  2. ESOMEPRAZOLE [Concomitant]
     Active Substance: ESOMEPRAZOLE
     Indication: Gastrooesophageal reflux disease
     Dosage: UNK
     Route: 048
  3. ASPIRIN [Concomitant]
     Active Substance: ASPIRIN
     Indication: Antiplatelet therapy
     Dosage: UNK
     Route: 048

REACTIONS (7)
  - Tonsillar hypertrophy [Recovering/Resolving]
  - Pharyngeal erythema [Recovering/Resolving]
  - Drug hypersensitivity [Recovering/Resolving]
  - Lip oedema [Recovering/Resolving]
  - Cough [Recovering/Resolving]
  - Rash [Recovering/Resolving]
  - Flushing [Recovering/Resolving]

NARRATIVE: CASE EVENT DATE: 20240507
